FAERS Safety Report 20046012 (Version 1)
Quarter: 2021Q4

REPORT INFORMATION
  Report Type: Spontaneous
  Country: US (occurrence: None)
  Receive Date: 20211108
  Receipt Date: 20211108
  Transmission Date: 20220303
  Serious: No
  Sender: FDA-Public Use
  Company Number: None

PATIENT
  Age: 75 Year
  Sex: Female
  Weight: 49.05 kg

DRUGS (4)
  1. AFINITOR [Suspect]
     Active Substance: EVEROLIMUS
     Indication: Breast cancer female
     Dosage: FREQUENCY : DAILY;?
     Route: 048
     Dates: start: 20211006, end: 20211029
  2. FAMOTIDINE [Concomitant]
     Active Substance: FAMOTIDINE
  3. Losartan potassium-HCTC 100mg-25mg [Concomitant]
  4. Proair HFA inhalation [Concomitant]

REACTIONS (3)
  - Dysphonia [None]
  - Oropharyngeal pain [None]
  - Lymphadenopathy [None]

NARRATIVE: CASE EVENT DATE: 20211018
